FAERS Safety Report 4278875-9 (Version None)
Quarter: 2004Q1

REPORT INFORMATION
  Report Type: 
  Country: None (occurrence: None)
  Receive Date: 20040122
  Receipt Date: 20040116
  Transmission Date: 20041129
  Serious: Yes (Hospitalization)
  Sender: FDA-Public Use
  Company Number: TPA2003A01243

PATIENT
  Age: 60 Year
  Sex: Female
  Weight: 90.2658 kg

DRUGS (17)
  1. ACTOS [Suspect]
     Indication: DIABETES MELLITUS NON-INSULIN-DEPENDENT
     Dosage: 15 MG, QAM, PER ORAL
     Route: 048
     Dates: start: 20010814, end: 20030520
  2. GLUCOPHAGE [Concomitant]
  3. DIABETA [Concomitant]
  4. UNKNOWN EYE DROPS (ALL OTHER THERAPEUTIC PRODUCTS) (EYE DROPS) [Concomitant]
  5. LASIX [Concomitant]
  6. AMARYL [Concomitant]
  7. ULTRAM [Concomitant]
  8. VIOXX [Concomitant]
  9. ALLEGRA-D [Concomitant]
  10. CELEXA [Concomitant]
  11. QUININE SULFATE (QUININE SULFATE) [Concomitant]
  12. LISINOPRIL [Concomitant]
  13. NITROGLYCERIN [Concomitant]
  14. INSULIN [Concomitant]
  15. HYDROCHLOROTHIAZIDE [Concomitant]
  16. DARVOCET (PROPACET) [Concomitant]
  17. ULTRASET (TRAMADOL) [Concomitant]

REACTIONS (9)
  - CARDIAC DISORDER [None]
  - CHOLECYSTITIS CHRONIC [None]
  - CHOLELITHIASIS [None]
  - HEPATIC CIRRHOSIS [None]
  - HEPATIC STEATOSIS [None]
  - LIPOGRANULOMA [None]
  - LYMPHOID TISSUE HYPERPLASIA [None]
  - MYOCARDIAL INFARCTION [None]
  - SWELLING [None]
